FAERS Safety Report 23357757 (Version 1)
Quarter: 2024Q1

REPORT INFORMATION
  Report Type: Spontaneous
  Country: US (occurrence: US)
  Receive Date: 20240102
  Receipt Date: 20240102
  Transmission Date: 20240410
  Serious: No
  Sender: FDA-Public Use
  Company Number: US-NKFPHARMA-2023MPSPO00057

PATIENT
  Sex: Female

DRUGS (2)
  1. ENOXAPARIN SODIUM [Suspect]
     Active Substance: ENOXAPARIN SODIUM
     Indication: Product used for unknown indication
     Dosage: EVERY 12 HOURS
     Route: 058
  2. ENOXAPARIN SODIUM [Suspect]
     Active Substance: ENOXAPARIN SODIUM

REACTIONS (5)
  - Injection site mass [Unknown]
  - Injection site reaction [Unknown]
  - Injection site bruising [Unknown]
  - Needle issue [Unknown]
  - Product packaging difficult to open [Unknown]
